FAERS Safety Report 6445507-0 (Version None)
Quarter: 2009Q4

REPORT INFORMATION
  Report Type: 
  Country: None (occurrence: None)
  Receive Date: 20091110
  Receipt Date: 20090819
  Transmission Date: 20100525
  Serious: No
  Sender: FDA-Public Use
  Company Number: 1000008303

PATIENT
  Age: 60 Year
  Sex: Female

DRUGS (17)
  1. SAVELLA [Suspect]
     Indication: PAIN
     Dosage: SEE IMAGE
     Route: 048
     Dates: start: 20090716, end: 20090716
  2. SAVELLA [Suspect]
     Indication: PAIN
     Dosage: SEE IMAGE
     Route: 048
     Dates: start: 20090719, end: 20090722
  3. SAVELLA [Suspect]
     Indication: PAIN
     Dosage: SEE IMAGE
     Route: 048
     Dates: start: 20090723, end: 20090728
  4. SAVELLA [Suspect]
     Indication: PAIN
     Dosage: SEE IMAGE
     Route: 048
     Dates: start: 20090817, end: 20090818
  5. SAVELLA [Suspect]
  6. SYNTHROID [Concomitant]
  7. FLONASE [Concomitant]
  8. METFORMIN HCL [Concomitant]
  9. PRILOSEC [Concomitant]
  10. LIDODERM [Concomitant]
  11. FELDINE [Concomitant]
  12. PREMARIN [Concomitant]
  13. PRISTIQ [Concomitant]
  14. LYRICA [Concomitant]
  15. POTASSIUM CHLORIDE [Concomitant]
  16. MAGNESIUM [Concomitant]
  17. COLCHICINE [Concomitant]

REACTIONS (2)
  - CONTUSION [None]
  - DYSURIA [None]
